FAERS Safety Report 15676696 (Version 5)
Quarter: 2020Q1

REPORT INFORMATION
  Report Type: Spontaneous
  Country: US (occurrence: US)
  Receive Date: 20181130
  Receipt Date: 20200121
  Transmission Date: 20200409
  Serious: No
  Sender: FDA-Public Use
  Company Number: US-SA-2018SA327276

PATIENT
  Age: 55 Year
  Sex: Female

DRUGS (3)
  1. AUBAGIO [Suspect]
     Active Substance: TERIFLUNOMIDE
     Indication: MULTIPLE SCLEROSIS
     Dosage: 14 MG, QD
     Route: 048
     Dates: start: 20181113
  2. PROVIGIL [Suspect]
     Active Substance: MODAFINIL
     Dosage: UNK UNK, UNK
  3. AMBIEN [Concomitant]
     Active Substance: ZOLPIDEM TARTRATE
     Route: 065

REACTIONS (14)
  - Hypopnoea [Unknown]
  - Product dose omission [Unknown]
  - Palpitations [Unknown]
  - Emotional disorder [Not Recovered/Not Resolved]
  - Fatigue [Not Recovered/Not Resolved]
  - Temperature intolerance [Not Recovered/Not Resolved]
  - Exposure to extreme temperature [Not Recovered/Not Resolved]
  - Band sensation [Unknown]
  - JC polyomavirus test positive [Not Recovered/Not Resolved]
  - Chest discomfort [Recovered/Resolved]
  - Alopecia [Unknown]
  - Sensory loss [Not Recovered/Not Resolved]
  - Muscle spasms [Unknown]
  - Fatigue [Unknown]

NARRATIVE: CASE EVENT DATE: 20181122
